FAERS Safety Report 6723312-5 (Version None)
Quarter: 2010Q2

REPORT INFORMATION
  Report Type: 
  Country: None (occurrence: None)
  Receive Date: 20100513
  Receipt Date: 20100513
  Transmission Date: 20101027
  Serious: Yes (Hospitalization)
  Sender: FDA-Public Use
  Company Number: None

PATIENT
  Age: 2 Year
  Sex: Female
  Weight: 11.7935 kg

DRUGS (3)
  1. CHILDREN'S TYLENOL 160 MG. PER  5 ML MCNEIL-PPC FORT WASHINGTON, PA [Suspect]
     Indication: TEETHING
     Dosage: 1 TSP EVERY 6 TO 8 HRS. PO
     Route: 048
     Dates: start: 20100101, end: 20100301
  2. CHILDREN'S MOTRIN [Suspect]
     Indication: INFLAMMATION
     Dosage: 1 TSP EVERY 4 TO 6 HRS. PO
     Route: 048
     Dates: start: 20100101, end: 20100331
  3. CHILDREN'S MOTRIN [Suspect]
     Indication: PYREXIA
     Dosage: 1 TSP EVERY 4 TO 6 HRS. PO
     Route: 048
     Dates: start: 20100101, end: 20100331

REACTIONS (3)
  - HIP SURGERY [None]
  - INFECTION [None]
  - MALAISE [None]
